FAERS Safety Report 9431318 (Version 1)
Quarter: 2013Q3

REPORT INFORMATION
  Report Type: Spontaneous
  Country: IN (occurrence: IN)
  Receive Date: 20130730
  Receipt Date: 20130730
  Transmission Date: 20140515
  Serious: Yes (Hospitalization)
  Sender: FDA-Public Use
  Company Number: IN-MYLANLABS-2013S1016185

PATIENT
  Age: 20 Month
  Sex: Male

DRUGS (5)
  1. SALBUTAMOL [Suspect]
     Route: 065
  2. SALBUTAMOL [Suspect]
     Dosage: INTERMITTENT, PROGRESSIVELY INCREASED
     Route: 055
  3. ALBUTEROL SULFATE W/IPRATROPIUM BROMIDE [Interacting]
     Dosage: THREE DOSES
     Route: 055
  4. HYDROCORTISONE [Interacting]
     Route: 065
  5. AMOXICILLIN [Concomitant]
     Route: 048

REACTIONS (4)
  - Metabolic acidosis [Recovered/Resolved]
  - Hyperventilation [Recovered/Resolved]
  - Toxicity to various agents [Recovered/Resolved]
  - Potentiating drug interaction [Recovered/Resolved]
